FAERS Safety Report 23503560 (Version 2)
Quarter: 2024Q1

REPORT INFORMATION
  Report Type: Spontaneous
  Country: SI (occurrence: SI)
  Receive Date: 20240209
  Receipt Date: 20240214
  Transmission Date: 20240410
  Serious: Yes (Hospitalization, Other)
  Sender: FDA-Public Use
  Company Number: SI-002147023-NVSC2024SI020290

PATIENT

DRUGS (22)
  1. RUXOLITINIB [Suspect]
     Active Substance: RUXOLITINIB
     Indication: Essential thrombocythaemia
     Dosage: 20 MG, BID
     Route: 065
     Dates: start: 2018
  2. RUXOLITINIB [Suspect]
     Active Substance: RUXOLITINIB
     Dosage: 15 MG, BID
     Route: 065
     Dates: start: 201910, end: 202009
  3. RUXOLITINIB [Suspect]
     Active Substance: RUXOLITINIB
     Dosage: 5 MG, BID
     Route: 065
     Dates: start: 202009, end: 2023
  4. RUXOLITINIB [Suspect]
     Active Substance: RUXOLITINIB
     Dosage: 10 MG, BID
     Route: 065
     Dates: start: 2023
  5. PROGRAF [Concomitant]
     Active Substance: TACROLIMUS
     Indication: Liver transplant
     Dosage: UNK
     Route: 065
  6. MEDROL [Concomitant]
     Active Substance: METHYLPREDNISOLONE
     Indication: Liver transplant
     Dosage: UNK
     Route: 065
  7. KYPROLIS [Concomitant]
     Active Substance: CARFILZOMIB
     Indication: Liver transplant
     Dosage: UNK
     Route: 065
  8. LIPOTRIL [Concomitant]
     Indication: Liver transplant
     Dosage: UNK
     Route: 065
  9. VALPROIC ACID [Concomitant]
     Active Substance: VALPROIC ACID
     Indication: Liver transplant
     Dosage: UNK
     Route: 065
  10. ROCALTROL [Concomitant]
     Active Substance: CALCITRIOL
     Indication: Liver transplant
     Dosage: UNK (0.25MG+0.25MG)
     Route: 065
  11. PANTOPRAZOLE SODIUM [Concomitant]
     Active Substance: PANTOPRAZOLE SODIUM
     Indication: Liver transplant
     Dosage: UNK
     Route: 065
  12. ASPIRIN [Concomitant]
     Active Substance: ASPIRIN
     Indication: Liver transplant
     Dosage: UNK
     Route: 065
  13. SULFAMETHOXAZOLE\TRIMETHOPRIM [Concomitant]
     Active Substance: SULFAMETHOXAZOLE\TRIMETHOPRIM
     Indication: Product used for unknown indication
     Dosage: UNK (1 TABLET)
     Route: 065
  14. FRAGMIN [Concomitant]
     Active Substance: DALTEPARIN SODIUM
     Indication: Product used for unknown indication
     Dosage: 7.5 UNK, Q12H
     Route: 065
  15. CYCLOPHOSPHAMIDE [Concomitant]
     Active Substance: CYCLOPHOSPHAMIDE
     Indication: Product used for unknown indication
     Dosage: UNK (EVERY 2 DAYS)
     Route: 065
  16. VALTREX [Concomitant]
     Active Substance: VALACYCLOVIR HYDROCHLORIDE
     Indication: Product used for unknown indication
     Dosage: 500 MG
     Route: 065
  17. CHOLECALCIFEROL [Concomitant]
     Active Substance: CHOLECALCIFEROL
     Indication: Product used for unknown indication
     Dosage: UNK (60 DROPS ON THURSDAYS)
     Route: 065
  18. CONTROLOC [Concomitant]
     Active Substance: PANTOPRAZOLE SODIUM
     Indication: Product used for unknown indication
     Dosage: UNK
     Route: 065
  19. BRIVIACT [Concomitant]
     Active Substance: BRIVARACETAM
     Indication: Product used for unknown indication
     Dosage: UNK (75+50MG)
     Route: 065
  20. RIVOTRIL [Concomitant]
     Active Substance: CLONAZEPAM
     Indication: Product used for unknown indication
     Dosage: UNK (2MG+2MG)
     Route: 065
  21. ADALAT [Concomitant]
     Active Substance: NIFEDIPINE
     Indication: Product used for unknown indication
     Dosage: 30MG WHEN BLOOD PRESSURE (RR) IS OVER 140MMHG
     Route: 065
  22. FUROSEMIDE [Concomitant]
     Active Substance: FUROSEMIDE
     Indication: Product used for unknown indication
     Dosage: 40 MG (IN THE MORNING)
     Route: 065

REACTIONS (24)
  - Weight decreased [Unknown]
  - Primary amyloidosis [Unknown]
  - Pain [Unknown]
  - Intestinal ischaemia [Unknown]
  - Off label use [Unknown]
  - Pulmonary thrombosis [Unknown]
  - Polycythaemia [Unknown]
  - Platelet count decreased [Unknown]
  - Myoclonus [Unknown]
  - Nodular fasciitis [Unknown]
  - Bone pain [Unknown]
  - Hypersplenism [Unknown]
  - Portal hypertension [Unknown]
  - Renal cyst [Unknown]
  - Splenic infarction [Unknown]
  - Splenic calcification [Unknown]
  - Splenomegaly [Unknown]
  - Hyponatraemia [Unknown]
  - Swelling [Unknown]
  - Portal vein dilatation [Unknown]
  - Asthenia [Unknown]
  - Vasodilatation [Unknown]
  - Neuropathy peripheral [Unknown]
  - Post cholecystectomy syndrome [Unknown]

NARRATIVE: CASE EVENT DATE: 20180101
